FAERS Safety Report 9434485 (Version 1)
Quarter: 2013Q3

REPORT INFORMATION
  Report Type: Spontaneous
  Country: BR (occurrence: BR)
  Receive Date: 20130801
  Receipt Date: 20130801
  Transmission Date: 20140515
  Serious: Yes (Other)
  Sender: FDA-Public Use
  Company Number: BR-SANOFI-AVENTIS-2012SA070065

PATIENT
  Age: 39 Year
  Sex: Female
  Weight: 60 kg

DRUGS (4)
  1. CLEXANE [Suspect]
     Indication: PRODUCT USED FOR UNKNOWN INDICATION
     Dosage: 1 AMPOULE DAILY?TAKEN TO: 45 DAYS AFTER DELIEVERY
     Route: 051
     Dates: start: 20120917, end: 2013
  2. AAS [Concomitant]
     Route: 048
     Dates: start: 20120917
  3. MULTIVITAMINS [Concomitant]
     Route: 048
     Dates: start: 20120917
  4. FOLIC ACID [Concomitant]
     Route: 048
     Dates: start: 20120917

REACTIONS (2)
  - Cervix disorder [Recovered/Resolved]
  - Exposure during pregnancy [Unknown]
